FAERS Safety Report 7998722-9 (Version None)
Quarter: 2011Q4

REPORT INFORMATION
  Report Type: 
  Country: None (occurrence: None)
  Receive Date: 20111216
  Receipt Date: 20111207
  Transmission Date: 20120403
  Serious: Yes (Disabling, Other)
  Sender: FDA-Public Use
  Company Number: 1064822

PATIENT
  Age: 72 Year
  Sex: Female

DRUGS (19)
  1. GLIPIZIDE [Concomitant]
  2. DILANTIN [Concomitant]
  3. (WARFARIN) [Concomitant]
  4. DILTIAZEM HCL INJ., USP 5 ML SINGLE DOSE FLIPTOP VIAL, 5MG/ML, CS/10 ( [Concomitant]
  5. METOPROLOL TARTRATE INJECTION, USP, 1 MG/ML, 5 ML VIALS (METOPROLOL) [Concomitant]
  6. BENADRYL [Concomitant]
  7. SODIUM CHLORIDE [Concomitant]
  8. (FOLBIC) [Concomitant]
  9. EPINEPHRINE [Concomitant]
  10. GENTAMICIN SULFATE [Suspect]
     Indication: SEPSIS
     Dosage: 300 MG, UNKNOWN (UNKNOWN), 300 MG, EVERY 48 HOURS (UNKNOWN), UNKNOWN, UNKNOWN (UNKNOWN)
     Route: 041
     Dates: start: 20101001, end: 20101021
  11. GENTAMICIN SULFATE [Suspect]
     Indication: SEPSIS
     Dosage: 300 MG, UNKNOWN (UNKNOWN), 300 MG, EVERY 48 HOURS (UNKNOWN), UNKNOWN, UNKNOWN (UNKNOWN)
     Route: 041
     Dates: start: 20101023, end: 20101028
  12. OMEPRAZOLE [Concomitant]
  13. SYNTHROID [Concomitant]
  14. SODIUM CHLORIDE 0.9% INJECTION, USP (SODIUM CHLORIDE) [Concomitant]
  15. PENICILLIN G [Concomitant]
  16. PROZAC [Concomitant]
  17. SIMVASTATIN [Concomitant]
  18. GENTAMICIN [Suspect]
     Indication: SEPSIS
     Dosage: 20 ML, UNKNOWN (UNKNOWN)
     Route: 041
  19. ZYVOX [Concomitant]

REACTIONS (11)
  - BALANCE DISORDER [None]
  - INJURY [None]
  - GAIT DISTURBANCE [None]
  - DISTURBANCE IN ATTENTION [None]
  - FALL [None]
  - CONTUSION [None]
  - HAEMATOMA [None]
  - POISONING [None]
  - HEAD INJURY [None]
  - PERIPHERAL NERVE INJURY [None]
  - DIZZINESS [None]
